FAERS Safety Report 6872006-4 (Version None)
Quarter: 2010Q3

REPORT INFORMATION
  Report Type: 
  Country: None (occurrence: None)
  Receive Date: 20100723
  Receipt Date: 20100713
  Transmission Date: 20110219
  Serious: Yes (Death, Hospitalization)
  Sender: FDA-Public Use
  Company Number: CO-JNJFOC-20100704976

PATIENT
  Age: 48 Year
  Sex: Female

DRUGS (6)
  1. REMICADE [Suspect]
     Indication: POLYCHONDRITIS
     Route: 042
  2. REMICADE [Suspect]
     Route: 042
  3. METHOTREXATE [Concomitant]
  4. FOLIC ACID [Concomitant]
  5. OMEPRAZOLE [Concomitant]
  6. CALCIUM [Concomitant]

REACTIONS (2)
  - RESPIRATORY FAILURE [None]
  - SUICIDE ATTEMPT [None]
